FAERS Safety Report 25854226 (Version 1)
Quarter: 2025Q3

REPORT INFORMATION
  Report Type: Spontaneous
  Country: CN (occurrence: CN)
  Receive Date: 20250926
  Receipt Date: 20250926
  Transmission Date: 20251020
  Serious: Yes (Hospitalization)
  Sender: MERCK SHARP & DOHME LLC
  Company Number: CN-009507513-2332064

PATIENT
  Age: 67 Year
  Sex: Male
  Weight: 73 kg

DRUGS (1)
  1. KEYTRUDA [Suspect]
     Active Substance: PEMBROLIZUMAB
     Indication: Squamous cell carcinoma of lung
     Route: 041
     Dates: start: 20240121, end: 20250705

REACTIONS (3)
  - Colitis [Not Recovered/Not Resolved]
  - Extravasation blood [Recovered/Resolved]
  - Colorectal adenoma [Unknown]

NARRATIVE: CASE EVENT DATE: 20250701
